FAERS Safety Report 8833290 (Version 2)
Quarter: 2012Q4

REPORT INFORMATION
  Report Type: 
  Country: US (occurrence: US)
  Receive Date: 20121010
  Receipt Date: 20121023
  Transmission Date: 20130627
  Serious: Yes (Other)
  Sender: FDA-Public Use
  Company Number: US-PFIZER INC-2012246629

PATIENT
  Age: 64 Year
  Sex: Female
  Weight: 54 kg

DRUGS (8)
  1. CALTRATE [Suspect]
     Indication: OSTEOPENIA
     Dosage: 2400 mg, daily
  2. ESTRING [Suspect]
     Indication: ATROPHIC VULVOVAGINITIS
     Dosage: UNK, every 6 weeks
     Route: 067
     Dates: start: 201202, end: 20121001
  3. ESTRING [Suspect]
     Indication: HORMONE REPLACEMENT THERAPY
     Dosage: 2 Estrings every 3 months
     Route: 067
  4. ESTRING [Suspect]
     Indication: VAGINAL DISCHARGE
  5. ESTRADIOL [Suspect]
     Indication: HORMONE REPLACEMENT THERAPY
     Dosage: 1.5 mg, daily
  6. IMURAN [Suspect]
     Indication: RHEUMATOID ARTHRITIS
     Dosage: 100 mg, 3x/day
  7. SYNTHROID [Suspect]
     Indication: AUTOIMMUNE THYROIDITIS
     Dosage: 175 ug, daily
  8. VOLTAREN [Suspect]
     Indication: RHEUMATOID ARTHRITIS
     Dosage: UNK, as needed

REACTIONS (3)
  - Systemic lupus erythematosus [Not Recovered/Not Resolved]
  - Vaginal discharge [Not Recovered/Not Resolved]
  - Off label use [Unknown]
